FAERS Safety Report 4991578-8 (Version None)
Quarter: 2006Q2

REPORT INFORMATION
  Report Type: 
  Country: None (occurrence: None)
  Receive Date: 20060502
  Receipt Date: 20060419
  Transmission Date: 20061013
  Serious: Yes (Other)
  Sender: FDA-Public Use
  Company Number: 2006053101

PATIENT
  Age: 31 Year
  Sex: Female
  Weight: 79 kg

DRUGS (7)
  1. LYRICA [Suspect]
     Indication: BACK PAIN
     Dosage: 150 MG (75 MG, 2 IN 1 D), ORAL
     Route: 048
     Dates: start: 20050601
  2. TRAMADOL HCL [Suspect]
     Indication: BACK PAIN
     Dosage: 50 MG (50 MG, 1 IN 1 D), ORAL
     Route: 048
  3. DIAPAM (DIAZEPAM) [Suspect]
     Indication: ILL-DEFINED DISORDER
  4. ALCOHOL (ETHANOL) [Suspect]
     Indication: ILL-DEFINED DISORDER
  5. ZITHROMAX [Concomitant]
  6. KEFEXIN (CEFALEXIN MONOHYDRATE) [Concomitant]
  7. TRAMADOL HYDROCHLORIDE [Concomitant]

REACTIONS (10)
  - CONFUSIONAL STATE [None]
  - DYSPNOEA [None]
  - GENERALISED OEDEMA [None]
  - HALLUCINATION, VISUAL [None]
  - HYPERHIDROSIS [None]
  - MUSCLE TWITCHING [None]
  - ONYCHOMADESIS [None]
  - TOOTH DISORDER [None]
  - VERTIGO [None]
  - WEIGHT INCREASED [None]
